FAERS Safety Report 11776391 (Version 1)
Quarter: 2015Q4

REPORT INFORMATION
  Report Type: Spontaneous
  Country: IT (occurrence: IT)
  Receive Date: 20151125
  Receipt Date: 20151125
  Transmission Date: 20160304
  Serious: Yes (Hospitalization)
  Sender: FDA-Public Use
  Company Number: IT-TEVA-610216ACC

PATIENT
  Age: 72 Year
  Sex: Male
  Weight: 88 kg

DRUGS (9)
  1. CARDIOASPIRIN - 100 MG COMPRESSE GASTRORESISTENTI [Concomitant]
     Active Substance: ASPIRIN
     Indication: PRODUCT USED FOR UNKNOWN INDICATION
  2. ETOPOSIDE TEVA - 5 ML 20MG/ML - TEVA PHARMA B.V. [Suspect]
     Active Substance: ETOPOSIDE
     Indication: TESTICULAR NEOPLASM
     Dosage: 200 MG CYCLICAL
     Route: 042
     Dates: start: 20150824, end: 20151105
  3. SPIRIVA - CAPSULE 18 MCG [Concomitant]
     Indication: PRODUCT USED FOR UNKNOWN INDICATION
  4. CARDICOR - COMPRESSE 5 MG [Concomitant]
     Indication: PRODUCT USED FOR UNKNOWN INDICATION
  5. TORVAST - 10 MG COMPRESSE MASTICABILI [Concomitant]
     Indication: PRODUCT USED FOR UNKNOWN INDICATION
  6. TRIATEC - 2,5 MG COMPRESSE [Concomitant]
     Indication: PRODUCT USED FOR UNKNOWN INDICATION
  7. BLEOPRIM - 15 MG POLVERE PER SOLUZIONE INIETTABILE [Concomitant]
     Indication: TESTICULAR NEOPLASM
     Dosage: 30 MG
     Route: 042
     Dates: start: 20150924, end: 20151105
  8. CISPLATINO HOSPIRA - 50 MG/50 ML SOLUZIONE PER INFUSIONE [Suspect]
     Active Substance: CISPLATIN
     Indication: TESTICULAR NEOPLASM
     Dosage: 40 MG CYCLICAL
     Route: 042
     Dates: start: 20150824, end: 20151105
  9. PEPTAZOL - COMPRESSE GASTRORESISTENTI 20 MG [Concomitant]
     Indication: PRODUCT USED FOR UNKNOWN INDICATION

REACTIONS (3)
  - Leukopenia [Recovered/Resolved]
  - Sepsis [Recovered/Resolved]
  - Thrombocytopenia [Recovered/Resolved]

NARRATIVE: CASE EVENT DATE: 20150902
